FAERS Safety Report 8821860 (Version 2)
Quarter: 2013Q4

REPORT INFORMATION
  Report Type: Report from Study
  Country: JP (occurrence: JP)
  Receive Date: 20121002
  Receipt Date: 20131106
  Transmission Date: 20140711
  Serious: Yes (Other)
  Sender: FDA-Public Use
  Company Number: JP-009507513-1208JPN012228

PATIENT
  Age: 65 Year
  Sex: Male
  Weight: 68 kg

DRUGS (3)
  1. PEGINTRON [Suspect]
     Indication: HEPATITIS C
     Dosage: 1.5 ? G/KG/WEEK
     Route: 058
     Dates: start: 20120605, end: 20120605
  2. REBETOL [Suspect]
     Indication: HEPATITIS C
     Dosage: 800 MG, QD
     Route: 048
     Dates: start: 20120605, end: 20120607
  3. TELAVIC [Suspect]
     Indication: HEPATITIS C
     Dosage: 2250 MG QD
     Route: 048
     Dates: start: 20120605, end: 20120607

REACTIONS (1)
  - Renal disorder [Recovered/Resolved]
